FAERS Safety Report 8614921-7 (Version None)
Quarter: 2012Q3

REPORT INFORMATION
  Report Type: 
  Country: None (occurrence: None)
  Receive Date: 20120823
  Receipt Date: 20120808
  Transmission Date: 20120928
  Serious: Yes (Hospitalization)
  Sender: FDA-Public Use
  Company Number: JP-009507513-1208JPN005598

PATIENT

DRUGS (9)
  1. ALLOPURINOL [Suspect]
     Indication: HYPERURICAEMIA
     Dosage: 200 MG, QD
     Route: 048
     Dates: start: 20120515, end: 20120611
  2. LETRAC [Concomitant]
     Dosage: 60 MG, QD AS NEEDED
     Route: 048
     Dates: start: 20120504, end: 20120515
  3. REBETOL [Suspect]
     Indication: HEPATITIS C
     Dosage: 800 MG, QD
     Route: 048
     Dates: end: 20120615
  4. TELAVIC [Suspect]
     Indication: HEPATITIS C
     Dosage: 2250 MILLIGRAMS, QD
     Route: 048
     Dates: start: 20120501, end: 20120615
  5. TELAVIC [Suspect]
     Dosage: 1500 MILLIGRAMS, QD
     Route: 048
     Dates: start: 20120626
  6. PEG-INTRON [Suspect]
     Dosage: 1.5 MICROGRAM PER KILOGRAM, QW
     Route: 058
     Dates: start: 20120626
  7. PEG-INTRON [Suspect]
     Indication: HEPATITIS C
     Dosage: 1.5 MICROGRAM PER KILOGRAM, QW
     Route: 058
     Dates: end: 20120619
  8. REBETOL [Suspect]
     Dosage: 800 MG, QD
     Route: 048
     Dates: start: 20120626
  9. TALION (BEPOTASTINE BESYLATE) [Concomitant]
     Indication: SKIN DISORDER
     Dosage: 20 MG, QD
     Route: 048
     Dates: start: 20120506

REACTIONS (1)
  - DIARRHOEA [None]
